FAERS Safety Report 17276221 (Version 2)
Quarter: 2020Q1

REPORT INFORMATION
  Report Type: Spontaneous
  Country: CA (occurrence: CA)
  Receive Date: 20200116
  Receipt Date: 20200130
  Transmission Date: 20200409
  Serious: Yes (Death, Hospitalization, Other)
  Sender: FDA-Public Use
  Company Number: CA-TEVA-2020-CA-1167829

PATIENT
  Age: 60 Year
  Sex: Male

DRUGS (10)
  1. FLUDARABINE [Suspect]
     Active Substance: FLUDARABINE PHOSPHATE
     Route: 065
  2. TRIMETHOPRIM AND SULFAMETHOXAZOLE [Concomitant]
     Active Substance: SULFAMETHOXAZOLE\TRIMETHOPRIM
  3. FLUCONAZOLE. [Concomitant]
     Active Substance: FLUCONAZOLE
  4. STATEX [MORPHINE SULFATE] [Suspect]
     Active Substance: MORPHINE SULFATE
     Indication: HEADACHE
     Dosage: 5-10 MG EVERY 4 HOURS
     Dates: start: 20190222, end: 20190321
  5. VALACYCLOVIR [Concomitant]
     Active Substance: VALACYCLOVIR HYDROCHLORIDE
  6. DIPOTASSIUM PHOSPHATE [Concomitant]
     Active Substance: POTASSIUM PHOSPHATE, DIBASIC
  7. LOPERAMIDE [Concomitant]
     Active Substance: LOPERAMIDE
  8. PIPERACILLINLTAZOBACTAM [Concomitant]
  9. METOCLOPRAMIDE. [Concomitant]
     Active Substance: METOCLOPRAMIDE
  10. ACYCLOVIR. [Concomitant]
     Active Substance: ACYCLOVIR

REACTIONS (13)
  - Nausea [Recovered/Resolved]
  - Body temperature increased [Unknown]
  - Toxic leukoencephalopathy [Fatal]
  - Decreased appetite [Unknown]
  - Headache [Unknown]
  - Tachycardia [Unknown]
  - Acute graft versus host disease [Unknown]
  - Delirium [Unknown]
  - Aggression [Unknown]
  - Confusional state [Unknown]
  - Vomiting [Unknown]
  - Disorientation [Unknown]
  - Hyperhidrosis [Unknown]

NARRATIVE: CASE EVENT DATE: 2019
